FAERS Safety Report 14433797 (Version 6)
Quarter: 2019Q1

REPORT INFORMATION
  Report Type: Spontaneous
  Country: US (occurrence: US)
  Receive Date: 20180124
  Receipt Date: 20190104
  Transmission Date: 20190417
  Serious: Yes (Life-Threatening, Hospitalization, Other)
  Sender: FDA-Public Use
  Company Number: US-ACTELION-A-NJ2018-165880

PATIENT
  Age: 67 Year
  Sex: Male
  Weight: 71.57 kg

DRUGS (36)
  1. TEMOVATE [Concomitant]
     Active Substance: CLOBETASOL PROPIONATE
  2. CLOPIDROGEL SANDOZ [Concomitant]
     Active Substance: CLOPIDOGREL BISULFATE
  3. UPTRAVI [Suspect]
     Active Substance: SELEXIPAG
     Indication: PULMONARY ARTERIAL HYPERTENSION
     Dosage: 200 MCG, BID
     Route: 048
     Dates: start: 20171214, end: 201805
  4. ASPIRIN. [Concomitant]
     Active Substance: ASPIRIN
     Dosage: 81 MG, UNK
  5. VOLTAREN [Concomitant]
     Active Substance: DICLOFENAC SODIUM
  6. HEPARIN [Concomitant]
     Active Substance: HEPARIN SODIUM
  7. ADCIRCA [Concomitant]
     Active Substance: TADALAFIL
  8. NORCO [Concomitant]
     Active Substance: ACETAMINOPHEN\HYDROCODONE BITARTRATE
  9. BACTROBAN [Concomitant]
     Active Substance: MUPIROCIN\MUPIROCIN CALCIUM
  10. SODIUM CHLORIDE. [Concomitant]
     Active Substance: SODIUM CHLORIDE
  11. VALTREX [Concomitant]
     Active Substance: VALACYCLOVIR HYDROCHLORIDE
  12. MAGNESIUM [Concomitant]
     Active Substance: MAGNESIUM
  13. TYVASO [Concomitant]
     Active Substance: TREPROSTINIL
  14. TESSALON [Concomitant]
     Active Substance: BENZONATATE
  15. INSPRA [Concomitant]
     Active Substance: EPLERENONE
  16. NEXIUM [Concomitant]
     Active Substance: ESOMEPRAZOLE MAGNESIUM
  17. SALINE [Concomitant]
     Active Substance: SODIUM CHLORIDE
  18. CALCIUM CHLORIDE. [Concomitant]
     Active Substance: CALCIUM CHLORIDE
  19. OCEAN SALINE NASAL SPRAY [Concomitant]
     Active Substance: SODIUM CHLORIDE
  20. FLONASE [Concomitant]
     Active Substance: FLUTICASONE PROPIONATE
  21. KLONOPIN [Concomitant]
     Active Substance: CLONAZEPAM
  22. PLAVIX [Concomitant]
     Active Substance: CLOPIDOGREL BISULFATE
  23. OXYGEN. [Concomitant]
     Active Substance: OXYGEN
     Route: 039
  24. DEMADEX [Concomitant]
     Active Substance: TORSEMIDE
  25. LAMISIL [Concomitant]
     Active Substance: TERBINAFINE HYDROCHLORIDE
  26. LIPITOR [Concomitant]
     Active Substance: ATORVASTATIN CALCIUM
  27. ZAROXOLYN [Concomitant]
     Active Substance: METOLAZONE
  28. MUCINEX [Concomitant]
     Active Substance: GUAIFENESIN
  29. UPTRAVI [Suspect]
     Active Substance: SELEXIPAG
     Dosage: 200 MCG, BID
     Route: 048
  30. AMBRISENTAN [Suspect]
     Active Substance: AMBRISENTAN
     Indication: PULMONARY HYPERTENSION
     Dosage: 10 MG, QD
     Route: 048
     Dates: start: 20161004
  31. EPLERENONE. [Concomitant]
     Active Substance: EPLERENONE
  32. PRILOSEC [Concomitant]
     Active Substance: OMEPRAZOLE MAGNESIUM
  33. ATARAX [Concomitant]
     Active Substance: HYDROXYZINE HYDROCHLORIDE
  34. UPTRAVI [Suspect]
     Active Substance: SELEXIPAG
     Dosage: 1 TABLET, QD
     Route: 048
  35. NEUROTIN [Concomitant]
     Active Substance: GABAPENTIN
  36. POTASSIUM CHLORIDE. [Concomitant]
     Active Substance: POTASSIUM CHLORIDE

REACTIONS (24)
  - General physical health deterioration [Unknown]
  - Peripheral swelling [Unknown]
  - Productive cough [Unknown]
  - Respiratory failure [Unknown]
  - Device intolerance [Recovered/Resolved]
  - Nasal congestion [Unknown]
  - Oedema peripheral [Unknown]
  - Condition aggravated [Unknown]
  - Cardiac failure [Unknown]
  - Fluid retention [Not Recovered/Not Resolved]
  - Pulmonary oedema [Recovered/Resolved]
  - Non-cardiac chest pain [Unknown]
  - Pulmonary arterial hypertension [Not Recovered/Not Resolved]
  - Pulmonary arterial pressure increased [Not Recovered/Not Resolved]
  - Right ventricular failure [Not Recovered/Not Resolved]
  - Hypoxia [Unknown]
  - Weight increased [Recovered/Resolved]
  - Cardiac failure congestive [Recovered/Resolved]
  - Dyspnoea [Unknown]
  - Dyspnoea paroxysmal nocturnal [Unknown]
  - Fatigue [Not Recovered/Not Resolved]
  - Cough [Unknown]
  - Myalgia [Unknown]
  - Cerebrovascular disorder [Unknown]

NARRATIVE: CASE EVENT DATE: 201712
